FAERS Safety Report 4543872-2 (Version None)
Quarter: 2005Q1

REPORT INFORMATION
  Report Type: 
  Country: None (occurrence: None)
  Receive Date: 20050104
  Receipt Date: 20041223
  Transmission Date: 20050727
  Serious: Yes (Hospitalization)
  Sender: FDA-Public Use
  Company Number: 200419782US

PATIENT
  Sex: 0

DRUGS (1)
  1. KETEK [Suspect]
     Dosage: DOSE: UNK

REACTIONS (5)
  - GENERAL PHYSICAL HEALTH DETERIORATION [None]
  - HYPOTENSION [None]
  - PYREXIA [None]
  - RASH [None]
  - RENAL FAILURE [None]
